FAERS Safety Report 19358094 (Version 1)
Quarter: 2021Q2

REPORT INFORMATION
  Report Type: Report from Study
  Country: US (occurrence: US)
  Receive Date: 20210601
  Receipt Date: 20210601
  Transmission Date: 20210717
  Serious: Yes (Other)
  Sender: FDA-Public Use
  Company Number: US-SUN PHARMACEUTICAL INDUSTRIES LTD-2021R1-298707

PATIENT
  Age: 72 Year
  Sex: Female

DRUGS (4)
  1. CABOMETYX [Suspect]
     Active Substance: CABOZANTINIB S-MALATE
     Dosage: 40 MILLIGRAM, QD
     Route: 065
     Dates: start: 20201025, end: 20201112
  2. BACTRIM [Suspect]
     Active Substance: SULFAMETHOXAZOLE\TRIMETHOPRIM
     Indication: PRODUCT USED FOR UNKNOWN INDICATION
     Dosage: UNK
     Route: 065
  3. CABOMETYX [Suspect]
     Active Substance: CABOZANTINIB S-MALATE
     Indication: RENAL CANCER
     Dosage: 60 MILLIGRAM
     Route: 065
     Dates: start: 202008, end: 202010
  4. CABOMETYX [Suspect]
     Active Substance: CABOZANTINIB S-MALATE
     Dosage: 20 MILLIGRAM, QD
     Route: 065
     Dates: start: 20201204

REACTIONS (12)
  - Feeding disorder [Unknown]
  - Hepatic enzyme increased [Unknown]
  - Taste disorder [Unknown]
  - Stomatitis [Unknown]
  - Blood calcium decreased [Unknown]
  - Glossitis [Unknown]
  - Candida infection [Unknown]
  - Cellulitis [Unknown]
  - Rash [Unknown]
  - Perineal rash [Recovering/Resolving]
  - Weight decreased [Recovered/Resolved]
  - Decreased appetite [Unknown]

NARRATIVE: CASE EVENT DATE: 20201228
